FAERS Safety Report 12765888 (Version 1)
Quarter: 2016Q3

REPORT INFORMATION
  Report Type: Spontaneous
  Country: US (occurrence: US)
  Receive Date: 20160920
  Receipt Date: 20160920
  Transmission Date: 20161109
  Serious: Yes (Hospitalization)
  Sender: FDA-Public Use
  Company Number: None

PATIENT
  Age: 70 Year
  Sex: Female
  Weight: 87 kg

DRUGS (2)
  1. VENOFER [Suspect]
     Active Substance: IRON SUCROSE
     Indication: GASTRIC ULCER
     Dosage: 200 MG OTHER INTRAVENOUS BOLUS
     Route: 040
     Dates: start: 20160817, end: 20160825
  2. AMOXICILLIN. [Suspect]
     Active Substance: AMOXICILLIN
     Indication: HELICOBACTER INFECTION
     Route: 048
     Dates: start: 20160817, end: 20160825

REACTIONS (1)
  - Rash [None]

NARRATIVE: CASE EVENT DATE: 20160825
